FAERS Safety Report 9301693 (Version 1)
Quarter: 2013Q2

REPORT INFORMATION
  Report Type: Spontaneous
  Country: NZ (occurrence: NZ)
  Receive Date: 20130521
  Receipt Date: 20130521
  Transmission Date: 20140414
  Serious: Yes (Other)
  Sender: FDA-Public Use
  Company Number: NZ-MYLANLABS-2013S1010288

PATIENT
  Age: 54 Year
  Sex: Male

DRUGS (2)
  1. WARFARIN [Suspect]
     Route: 065
  2. DOXYCYCLINE [Suspect]
     Indication: BRONCHIECTASIS
     Route: 048

REACTIONS (2)
  - Calciphylaxis [Recovering/Resolving]
  - Vitamin K deficiency [Unknown]
